FAERS Safety Report 5186633-6 (Version None)
Quarter: 2006Q4

REPORT INFORMATION
  Report Type: 
  Country: None (occurrence: None)
  Receive Date: 20061220
  Receipt Date: 20060215
  Transmission Date: 20070319
  Serious: No
  Sender: FDA-Public Use
  Company Number: US-AMGEN-US169013

PATIENT
  Age: 19 Year
  Sex: Female

DRUGS (3)
  1. ENBREL [Suspect]
     Indication: RHEUMATOID ARTHRITIS
     Route: 065
     Dates: start: 20050601
  2. METHOTREXATE [Concomitant]
     Route: 065
  3. PREDNISONE TAB [Concomitant]
     Route: 065

REACTIONS (1)
  - TACHYCARDIA [None]
